FAERS Safety Report 10642555 (Version 1)
Quarter: 2014Q4

REPORT INFORMATION
  Report Type: Spontaneous
  Country: CA (occurrence: CA)
  Receive Date: 20141210
  Receipt Date: 20141210
  Transmission Date: 20150529
  Serious: Yes (Other)
  Sender: FDA-Public Use
  Company Number: CA-ROCHE-1503733

PATIENT
  Age: 64 Year
  Sex: Female
  Weight: 55 kg

DRUGS (8)
  1. RIBAVIRIN. [Suspect]
     Active Substance: RIBAVIRIN
     Dosage: THERAPY DURATION: 23 DAYS
     Route: 048
  2. PEGASYS [Suspect]
     Active Substance: PEGINTERFERON ALFA-2A
     Dosage: THERAPY DURATION: 215 DAYS
     Route: 058
  3. INSULIN [Concomitant]
     Active Substance: INSULIN NOS
     Dosage: DOSE: DRPOS
     Route: 048
  4. RIBAVIRIN. [Suspect]
     Active Substance: RIBAVIRIN
     Indication: PRODUCT USED FOR UNKNOWN INDICATION
     Dosage: THERAPY DURATION: 6 MONTHS
     Route: 048
  5. VICTRELIS [Suspect]
     Active Substance: BOCEPREVIR
     Indication: PRODUCT USED FOR UNKNOWN INDICATION
     Dosage: THERAPY DURATION: 6 MONTHS
     Route: 048
  6. RIBAVIRIN. [Suspect]
     Active Substance: RIBAVIRIN
     Dosage: THERAPY DURATION: 12 DAYS
     Route: 048
  7. PEGASYS [Suspect]
     Active Substance: PEGINTERFERON ALFA-2A
     Indication: PRODUCT USED FOR UNKNOWN INDICATION
     Dosage: THERAPY DURATION: 1 MONTH
     Route: 065
  8. RIBAVIRIN. [Suspect]
     Active Substance: RIBAVIRIN
     Dosage: THERAPY DURATION: 215 DAYS
     Route: 048

REACTIONS (34)
  - Candida infection [Unknown]
  - Echolalia [Unknown]
  - Hypovolaemia [Unknown]
  - Vomiting [Unknown]
  - Abdominal discomfort [Unknown]
  - Dialysis [Unknown]
  - Dyslipidaemia [Unknown]
  - Transfusion [Unknown]
  - Type 2 diabetes mellitus [Unknown]
  - Anaemia [Unknown]
  - Coma [Unknown]
  - Deafness neurosensory [Unknown]
  - Decreased appetite [Unknown]
  - Hypoglycaemic seizure [Unknown]
  - Pancytopenia [Unknown]
  - Basal ganglia stroke [Unknown]
  - Blood creatinine increased [Unknown]
  - Confusional state [Unknown]
  - Depressed level of consciousness [Unknown]
  - Hypertension [Unknown]
  - Pain [Unknown]
  - Tongue discolouration [Unknown]
  - Adrenal insufficiency [Unknown]
  - Aphagia [Unknown]
  - Cough [Unknown]
  - Hyponatraemia [Unknown]
  - Ileus [Unknown]
  - Thrombocytopenia [Unknown]
  - Intestinal obstruction [Unknown]
  - Pyrexia [Unknown]
  - Renal tubular necrosis [Unknown]
  - Chills [Unknown]
  - Nausea [Unknown]
  - Sepsis [Unknown]
